FAERS Safety Report 6934325-2 (Version None)
Quarter: 2010Q3

REPORT INFORMATION
  Report Type: 
  Country: None (occurrence: None)
  Receive Date: 20100820
  Receipt Date: 20100813
  Transmission Date: 20110219
  Serious: Yes (Hospitalization)
  Sender: FDA-Public Use
  Company Number: A0870091A

PATIENT
  Age: 71 Year
  Sex: Female
  Weight: 76.7 kg

DRUGS (2)
  1. TYKERB [Suspect]
     Indication: BREAST CANCER RECURRENT
     Dosage: 1250MG PER DAY
     Route: 065
     Dates: start: 20100701, end: 20100713
  2. XELODA [Suspect]
     Indication: BREAST CANCER RECURRENT
     Dosage: 1000MG TWICE PER DAY
     Route: 065
     Dates: start: 20100701, end: 20100713

REACTIONS (11)
  - ARTHRALGIA [None]
  - BLOOD PRESSURE INCREASED [None]
  - CHEST PAIN [None]
  - CONDITION AGGRAVATED [None]
  - DRY EYE [None]
  - ERYTHEMA [None]
  - GAIT DISTURBANCE [None]
  - GASTROOESOPHAGEAL REFLUX DISEASE [None]
  - PAIN IN EXTREMITY [None]
  - RASH ERYTHEMATOUS [None]
  - SKIN CHAPPED [None]
